FAERS Safety Report 8925963 (Version 2)
Quarter: 2013Q1

REPORT INFORMATION
  Report Type: Report from Study
  Country: CA (occurrence: CA)
  Receive Date: 20121126
  Receipt Date: 20130225
  Transmission Date: 20140127
  Serious: Yes (Other)
  Sender: FDA-Public Use
  Company Number: CA-ROCHE-1061188

PATIENT
  Age: 47 None
  Sex: Female
  Weight: 56.75 kg

DRUGS (9)
  1. RITUXAN [Suspect]
     Indication: RHEUMATOID ARTHRITIS
     Route: 042
     Dates: start: 20090706
  2. SYNTHROID [Concomitant]
     Dosage: 0.175 MG, 9X PER WEEK
     Route: 065
  3. SYNTHROID [Concomitant]
     Route: 065
  4. VOLTAREN [Concomitant]
     Route: 065
  5. DIPHENHYDRAMINE HCL [Concomitant]
     Route: 048
     Dates: start: 20090706
  6. ACETAMINOPHEN [Concomitant]
     Route: 048
     Dates: start: 20090706
  7. METHYLPREDNISOLONE [Concomitant]
     Route: 042
     Dates: start: 20090706
  8. METHOTREXATE [Concomitant]
  9. FOLIC ACID [Concomitant]

REACTIONS (13)
  - Cervical dysplasia [Unknown]
  - Papilloma viral infection [Unknown]
  - Gastrointestinal infection [Recovered/Resolved]
  - Influenza [Recovered/Resolved]
  - Nausea [Recovered/Resolved]
  - Nasopharyngitis [Recovered/Resolved]
  - Headache [Recovered/Resolved]
  - Pain [Recovered/Resolved]
  - Rheumatoid arthritis [Recovered/Resolved]
  - Tooth infection [Recovered/Resolved]
  - Tooth extraction [Recovered/Resolved]
  - Nasopharyngitis [Not Recovered/Not Resolved]
  - Weight decreased [Unknown]
